FAERS Safety Report 7449130-0 (Version None)
Quarter: 2011Q2

REPORT INFORMATION
  Report Type: 
  Country: None (occurrence: None)
  Receive Date: 20110502
  Receipt Date: 20110404
  Transmission Date: 20111010
  Serious: Yes (Other)
  Sender: FDA-Public Use
  Company Number: HR-BAYER-2011-029875

PATIENT
  Age: 59 Year
  Sex: Female

DRUGS (4)
  1. FLUIMUKAN [Suspect]
     Indication: COUGH
     Dosage: UNK
     Dates: start: 20100315, end: 20100315
  2. CONCOR COR [Concomitant]
     Indication: ESSENTIAL HYPERTENSION
     Dosage: UNK MG, UNK
  3. AMRINONE LACTATE [Concomitant]
     Indication: ESSENTIAL HYPERTENSION
     Dosage: 10 MG, UNK
  4. ASPIRIN [Suspect]
     Indication: ESSENTIAL HYPERTENSION
     Dosage: UNK
     Route: 048
     Dates: start: 20100101

REACTIONS (2)
  - BLOOD URINE PRESENT [None]
  - ABDOMINAL PAIN UPPER [None]
